FAERS Safety Report 5753348-2 (Version None)
Quarter: 2008Q2

REPORT INFORMATION
  Report Type: 
  Country: None (occurrence: None)
  Receive Date: 20080530
  Receipt Date: 20080522
  Transmission Date: 20081010
  Serious: Yes (Other)
  Sender: FDA-Public Use
  Company Number: JP-TYCO HEALTHCARE/MALLINCKRODT-T200800877

PATIENT

DRUGS (6)
  1. METHYLIN [Suspect]
     Indication: PSYCHOTHERAPY
     Dosage: 10 MG, QD
  2. SERTRALINE [Suspect]
     Indication: DEPRESSION
     Dosage: FROM DAY 111 DOSES INCREASING TO 100 MG ON DAY 122, QD
  3. SERTRALINE [Suspect]
     Dosage: 100 MG, QD FROM DAY 111 TO DAY 130
  4. PAROXETINE HCL [Concomitant]
     Indication: DEPRESSION
     Dosage: 40 MG, QD
  5. MILNACIPRAN [Concomitant]
     Indication: DEPRESSION
     Dosage: 100 MG, QD
  6. AMOXAPINE [Concomitant]
     Indication: DEPRESSION
     Dosage: 225 MG, QD

REACTIONS (1)
  - SEROTONIN SYNDROME [None]
